FAERS Safety Report 10563710 (Version 5)
Quarter: 2015Q1

REPORT INFORMATION
  Report Type: Report from Study
  Country: US (occurrence: US)
  Receive Date: 20141104
  Receipt Date: 20150326
  Transmission Date: 20150720
  Serious: Yes (Hospitalization, Other)
  Sender: FDA-Public Use
  Company Number: US-BAYER-2014-125762

PATIENT
  Age: 79 Year
  Sex: Male

DRUGS (2)
  1. STIVARGA [Suspect]
     Active Substance: REGORAFENIB
     Indication: GASTROINTESTINAL STROMAL TUMOUR
     Dosage: DAILY DOSE 120MG
     Route: 048
     Dates: start: 20140926, end: 20141202
  2. STIVARGA [Suspect]
     Active Substance: REGORAFENIB
     Indication: COLORECTAL CANCER METASTATIC
     Dosage: 160 MG, DAILY
     Route: 048
     Dates: start: 20140812, end: 20140924

REACTIONS (13)
  - Erythema [None]
  - Pain in extremity [None]
  - Ammonia increased [None]
  - Blood pressure increased [None]
  - Confusional state [None]
  - Rash [Recovering/Resolving]
  - Abdominal pain [None]
  - Blood pressure fluctuation [None]
  - Pneumonia [None]
  - Abdominal distension [None]
  - Decreased appetite [None]
  - Blister [Recovered/Resolved]
  - Body temperature increased [None]

NARRATIVE: CASE EVENT DATE: 201408
